FAERS Safety Report 6309006-9 (Version None)
Quarter: 2009Q3

REPORT INFORMATION
  Report Type: 
  Country: None (occurrence: None)
  Receive Date: 20090813
  Receipt Date: 20090806
  Transmission Date: 20100115
  Serious: Yes (Hospitalization, Other)
  Sender: FDA-Public Use
  Company Number: US-ABBOTT-09P-163-0589895-00

PATIENT
  Sex: Male
  Weight: 107.14 kg

DRUGS (4)
  1. HUMIRA [Suspect]
     Indication: PSORIATIC ARTHROPATHY
     Route: 058
     Dates: start: 20080801, end: 20081201
  2. HUMIRA [Suspect]
     Route: 058
     Dates: start: 20081201, end: 20090201
  3. AZULFIDINE EN-TABS [Suspect]
     Indication: PSORIATIC ARTHROPATHY
     Dates: end: 20090201
  4. PREDNISONE [Concomitant]
     Indication: PSORIATIC ARTHROPATHY
     Dosage: VARIOUS DOSES
     Route: 048

REACTIONS (7)
  - CARDIAC TAMPONADE [None]
  - DRUG INEFFECTIVE [None]
  - DYSPNOEA [None]
  - LUPUS-LIKE SYNDROME [None]
  - PERICARDITIS [None]
  - PLEURAL EFFUSION [None]
  - RESTRICTIVE PULMONARY DISEASE [None]
